FAERS Safety Report 6241402-0 (Version None)
Quarter: 2009Q2

REPORT INFORMATION
  Report Type: 
  Country: None (occurrence: None)
  Receive Date: 20090623
  Receipt Date: 20090618
  Transmission Date: 20091009
  Serious: Yes (Death)
  Sender: FDA-Public Use
  Company Number: GB-SANOFI-SYNTHELABO-A01200906455

PATIENT
  Age: 80 Year
  Sex: Male

DRUGS (1)
  1. PLAVIX [Suspect]
     Indication: CEREBRAL ARTERY EMBOLISM
     Dosage: UNK
     Route: 048
     Dates: start: 20081101

REACTIONS (1)
  - PANCREATITIS ACUTE [None]
